FAERS Safety Report 12340280 (Version 1)
Quarter: 2016Q2

REPORT INFORMATION
  Report Type: Spontaneous
  Country: IT (occurrence: IT)
  Receive Date: 20160506
  Receipt Date: 20160506
  Transmission Date: 20160815
  Serious: Yes (Other)
  Sender: FDA-Public Use
  Company Number: IT-SUN PHARMACEUTICAL INDUSTRIES LTD-2016R1-115818

PATIENT
  Sex: Female

DRUGS (1)
  1. NICARDIPINE [Suspect]
     Active Substance: NICARDIPINE
     Indication: TOCOLYSIS
     Route: 042

REACTIONS (3)
  - Exposure during pregnancy [Unknown]
  - Acute pulmonary oedema [Unknown]
  - Off label use [Unknown]
